FAERS Safety Report 8873873 (Version 1)
Quarter: 2012Q4

REPORT INFORMATION
  Report Type: 
  Country: US (occurrence: US)
  Receive Date: 20121023
  Receipt Date: 20121023
  Transmission Date: 20130627
  Serious: No
  Sender: FDA-Public Use
  Company Number: US-ASTELLAS-2012US002782

PATIENT
  Age: 83 Year
  Sex: Male

DRUGS (2)
  1. LEXISCAN [Suspect]
     Indication: EXERCISE ELECTROCARDIOGRAM
     Dosage: 0.4 mg/5 mL, Total Dose
     Route: 042
     Dates: start: 20120229, end: 20120229
  2. LEXISCAN [Suspect]

REACTIONS (1)
  - Off label use [Unknown]
